FAERS Safety Report 12310552 (Version 2)
Quarter: 2016Q2

REPORT INFORMATION
  Report Type: Spontaneous
  Country: GB (occurrence: GB)
  Receive Date: 20160427
  Receipt Date: 20160505
  Transmission Date: 20160815
  Serious: Yes (Other)
  Sender: FDA-Public Use
  Company Number: GB-JNJFOC-20160419659

PATIENT
  Sex: Female

DRUGS (3)
  1. RISPERIDONE. [Suspect]
     Active Substance: RISPERIDONE
     Indication: SCHIZOAFFECTIVE DISORDER
     Route: 065
     Dates: start: 20020707, end: 20020831
  2. PARACETAMOL [Suspect]
     Active Substance: ACETAMINOPHEN
     Route: 065
  3. PARACETAMOL [Suspect]
     Active Substance: ACETAMINOPHEN
     Indication: SUICIDE ATTEMPT
     Dosage: 80 PARACETAMOL
     Route: 065

REACTIONS (7)
  - Suicide attempt [Unknown]
  - Sluggishness [Unknown]
  - Delusion [Unknown]
  - Paranoia [Unknown]
  - Swelling face [Unknown]
  - Depressed mood [Unknown]
  - Abnormal behaviour [Unknown]
